FAERS Safety Report 17301153 (Version 1)
Quarter: 2020Q1

REPORT INFORMATION
  Report Type: Spontaneous
  Country: US (occurrence: US)
  Receive Date: 20200122
  Receipt Date: 20200122
  Transmission Date: 20200409
  Serious: Yes (Other)
  Sender: FDA-Public Use
  Company Number: NVSC2020US004575

PATIENT
  Sex: Female

DRUGS (2)
  1. BIMATOPROST. [Suspect]
     Active Substance: BIMATOPROST
     Indication: PRODUCT USED FOR UNKNOWN INDICATION
     Dosage: UNK UNK, QD
     Route: 065
     Dates: start: 20190112
  2. BIMATOPROST. [Suspect]
     Active Substance: BIMATOPROST
     Dosage: UNK UNK, QD
     Route: 065
     Dates: start: 20191225

REACTIONS (5)
  - Erythema [Unknown]
  - Neoplasm malignant [Unknown]
  - Pruritus [Unknown]
  - Irritability [Unknown]
  - Hypersensitivity [Unknown]
